FAERS Safety Report 7077729-2 (Version None)
Quarter: 2010Q4

REPORT INFORMATION
  Report Type: 
  Country: None (occurrence: None)
  Receive Date: 20101021
  Receipt Date: 20101013
  Transmission Date: 20110411
  Serious: Yes (Hospitalization)
  Sender: FDA-Public Use
  Company Number: 020308

PATIENT
  Sex: Male

DRUGS (3)
  1. VIMPAT [Suspect]
     Dates: start: 20100101
  2. KEPPRA [Suspect]
  3. CARBAMAZEPINE [Suspect]

REACTIONS (3)
  - GAIT DISTURBANCE [None]
  - PARESIS [None]
  - POLYNEUROPATHY [None]
